FAERS Safety Report 5673032-3 (Version None)
Quarter: 2008Q1

REPORT INFORMATION
  Report Type: 
  Country: None (occurrence: None)
  Receive Date: 20080319
  Receipt Date: 20080207
  Transmission Date: 20080703
  Serious: No
  Sender: FDA-Public Use
  Company Number: US-ASTRAZENECA-2008UW02581

PATIENT
  Age: 62 Year
  Sex: Male
  Weight: 76.2 kg

DRUGS (2)
  1. SYMBICORT [Suspect]
     Indication: CHRONIC OBSTRUCTIVE PULMONARY DISEASE
     Dosage: 160/4.5, 2 PUFF, BID
     Route: 055
     Dates: start: 20071001
  2. SPIRIVA [Concomitant]

REACTIONS (4)
  - BLOOD PRESSURE INCREASED [None]
  - HEADACHE [None]
  - INCREASED UPPER AIRWAY SECRETION [None]
  - SINUS DISORDER [None]
